FAERS Safety Report 26099782 (Version 1)
Quarter: 2025Q4

REPORT INFORMATION
  Report Type: Spontaneous
  Country: GB (occurrence: GB)
  Receive Date: 20251128
  Receipt Date: 20251128
  Transmission Date: 20260118
  Serious: Yes (Hospitalization)
  Sender: HETERO
  Company Number: None

PATIENT
  Sex: Female

DRUGS (2)
  1. MIRTAZAPINE [Suspect]
     Active Substance: MIRTAZAPINE
     Indication: Product use in unapproved indication
     Dosage: 30 MILLIGRAM, Q.H.S.
     Route: 065
     Dates: start: 20251113, end: 20251115
  2. FLUOXETINE [Suspect]
     Active Substance: FLUOXETINE HYDROCHLORIDE
     Indication: Product use in unapproved indication
     Dosage: 20 MILLIGRAM, Q.A.M.
     Route: 065

REACTIONS (2)
  - Chest pain [Unknown]
  - Sedation [Recovering/Resolving]

NARRATIVE: CASE EVENT DATE: 20251113
